FAERS Safety Report 6894969-3 (Version None)
Quarter: 2010Q3

REPORT INFORMATION
  Report Type: 
  Country: None (occurrence: None)
  Receive Date: 20100802
  Receipt Date: 20100726
  Transmission Date: 20110219
  Serious: Yes (Life-Threatening, Hospitalization)
  Sender: FDA-Public Use
  Company Number: US-ROCHE-717186

PATIENT
  Sex: Male
  Weight: 66.1 kg

DRUGS (24)
  1. BEVACIZUMAB [Suspect]
     Indication: NON-SMALL CELL LUNG CANCER
     Dosage: FIRST DOSE
     Route: 065
     Dates: start: 20100528
  2. BEVACIZUMAB [Suspect]
     Dosage: DOSE RECEIVED PRIOR TO THE ONSET OF EVENT
     Route: 065
     Dates: start: 20100702
  3. PACLITAXEL [Suspect]
     Indication: NON-SMALL CELL LUNG CANCER
     Route: 065
     Dates: start: 20100611
  4. PACLITAXEL [Suspect]
     Dosage: DOSE RECEIVED PRIOR TO THE ONSET OF EVENT
     Route: 065
     Dates: start: 20100716
  5. CARBOPLATIN [Suspect]
     Indication: NON-SMALL CELL LUNG CANCER
     Dosage: D1 Q 21 DAYS
     Route: 065
     Dates: start: 20100611
  6. CARBOPLATIN [Suspect]
     Dosage: DOSE RECEIVED PRIOR TO THE ONSET OF EVENT
     Route: 065
     Dates: start: 20100702
  7. ATIVAN [Concomitant]
  8. BACTRIM [Concomitant]
  9. COMPAZINE [Concomitant]
  10. DECADRON [Concomitant]
  11. FUROSEMIDE [Concomitant]
  12. LACTULOSE [Concomitant]
  13. MARINOL [Concomitant]
  14. METHYLPHENIDATE HCL [Concomitant]
  15. OMEPRAZOLE [Concomitant]
  16. OXYCODONE HCL [Concomitant]
  17. POTASSIUM CHLORIDE [Concomitant]
  18. OXYCONTIN [Concomitant]
  19. SEROQUEL [Concomitant]
  20. TRAZODONE [Concomitant]
  21. ZOFRAN [Concomitant]
  22. ALBUTEROL SULFATE AND IPRATROPIUM BROMIDE [Concomitant]
  23. NYSTATIN [Concomitant]
  24. PROPRANOLOL [Concomitant]

REACTIONS (2)
  - FAILURE TO THRIVE [None]
  - PULMONARY EMBOLISM [None]
